FAERS Safety Report 26012420 (Version 1)
Quarter: 2025Q4

REPORT INFORMATION
  Report Type: Spontaneous
  Country: US (occurrence: US)
  Receive Date: 20251107
  Receipt Date: 20251107
  Transmission Date: 20260118
  Serious: No
  Sender: MYLAN
  Company Number: US-MYLANLABS-2025M1092436

PATIENT
  Age: 75 Year
  Sex: Male

DRUGS (1)
  1. PHENYTOIN [Suspect]
     Active Substance: PHENYTOIN
     Indication: Product used for unknown indication
     Dosage: 200 MILLIGRAM, BID (EVERY 12 HOURS FOR 2 DAYS)

REACTIONS (2)
  - Drug level decreased [Unknown]
  - Therapeutic response unexpected [Unknown]
